FAERS Safety Report 23588523 (Version 1)
Quarter: 2024Q1

REPORT INFORMATION
  Report Type: Spontaneous
  Country: CA (occurrence: CA)
  Receive Date: 20240302
  Receipt Date: 20240302
  Transmission Date: 20240410
  Serious: Yes (Hospitalization, Disabling, Other)
  Sender: FDA-Public Use
  Company Number: CA-ORGANON-O2402CAN001794

PATIENT
  Age: 44 Year
  Sex: Female
  Weight: 97 kg

DRUGS (141)
  1. FOSAMAX [Suspect]
     Active Substance: ALENDRONATE SODIUM
     Indication: Rheumatoid arthritis
     Route: 048
  2. FOSAMAX [Suspect]
     Active Substance: ALENDRONATE SODIUM
     Dosage: UNK
     Route: 048
  3. ALENDRONIC ACID [Suspect]
     Active Substance: ALENDRONIC ACID
     Indication: Rheumatoid arthritis
     Dosage: UNK
     Route: 048
  4. DICLOFENAC [Suspect]
     Active Substance: DICLOFENAC
     Indication: Product used for unknown indication
     Dosage: UNK
     Route: 065
  5. DICLOFENAC POTASSIUM [Suspect]
     Active Substance: DICLOFENAC POTASSIUM
     Indication: Rheumatoid arthritis
     Dosage: UNK
     Route: 048
  6. DICLOFENAC SODIUM [Suspect]
     Active Substance: DICLOFENAC\DICLOFENAC SODIUM
     Indication: Product used for unknown indication
     Dosage: UNK
     Route: 065
  7. ERELZI [Suspect]
     Active Substance: ETANERCEPT-SZZS
     Indication: Product used for unknown indication
     Dosage: UNK
     Route: 058
  8. ERELZI [Suspect]
     Active Substance: ETANERCEPT-SZZS
     Dosage: 25 MILLIGRAM
     Route: 065
  9. ERELZI [Suspect]
     Active Substance: ETANERCEPT-SZZS
     Indication: Product used for unknown indication
     Dosage: UNK
     Route: 065
  10. ERELZI [Suspect]
     Active Substance: ETANERCEPT-SZZS
     Dosage: 25.0 MILLIGRAM
     Route: 065
  11. FOLIC ACID [Suspect]
     Active Substance: FOLIC ACID
     Indication: Rheumatoid arthritis
     Dosage: 1.0 MILLIGRAM
     Route: 065
  12. FOLIC ACID [Suspect]
     Active Substance: FOLIC ACID
     Dosage: 1.0 MILLIGRAM
     Route: 065
  13. FOLIC ACID [Suspect]
     Active Substance: FOLIC ACID
     Dosage: UNK
     Route: 065
  14. FOLIC ACID [Suspect]
     Active Substance: FOLIC ACID
     Dosage: 5.0 MILLIGRAM
     Route: 065
  15. HYDROXYCHLOROQUINE SULFATE [Suspect]
     Active Substance: HYDROXYCHLOROQUINE SULFATE
     Indication: Product used for unknown indication
     Dosage: UNK
     Route: 048
  16. HYDROXYCHLOROQUINE SULFATE [Suspect]
     Active Substance: HYDROXYCHLOROQUINE SULFATE
     Dosage: 400 MILLIGRAM,1 EVERY 1 DAYS
     Route: 048
  17. LEFLUNOMIDE [Suspect]
     Active Substance: LEFLUNOMIDE
     Indication: Product used for unknown indication
     Dosage: UNK
     Route: 048
  18. LEFLUNOMIDE [Suspect]
     Active Substance: LEFLUNOMIDE
     Dosage: 20.0 MILLIGRAM
     Route: 048
  19. METHOTREXATE [Suspect]
     Active Substance: METHOTREXATE
     Indication: Rheumatoid arthritis
     Dosage: 20 MILLIGRAM, 1 EVERY 1 DAYS
     Route: 065
  20. METHOTREXATE [Suspect]
     Active Substance: METHOTREXATE
     Indication: Rheumatoid arthritis
     Dosage: 20.0 MILLIGRAM,1 EVERY 1 DAYS
     Route: 048
  21. METHOTREXATE [Suspect]
     Active Substance: METHOTREXATE
     Dosage: UNK
     Route: 048
  22. METHOTREXATE [Suspect]
     Active Substance: METHOTREXATE
     Dosage: 25.0 MILLIGRAM
     Route: 048
  23. METHOTREXATE [Suspect]
     Active Substance: METHOTREXATE
     Dosage: 20.0 MILLIGRAM,
     Route: 048
  24. METHOTREXATE [Suspect]
     Active Substance: METHOTREXATE
     Indication: Rheumatoid arthritis
     Dosage: 20.0 MILLIGRAM, 1 EVERY 1 WEEKS
     Route: 013
  25. OXYCODONE [Suspect]
     Active Substance: OXYCODONE\OXYCODONE HYDROCHLORIDE
     Indication: Product used for unknown indication
     Dosage: UNK
     Route: 065
  26. OXYCODONE HYDROCHLORIDE [Suspect]
     Active Substance: OXYCODONE HYDROCHLORIDE
     Indication: Product used for unknown indication
     Dosage: UNK
     Route: 065
  27. OXYCODONE HYDROCHLORIDE [Suspect]
     Active Substance: OXYCODONE HYDROCHLORIDE
     Dosage: UNK
     Route: 065
  28. PREDNISONE [Suspect]
     Active Substance: PREDNISONE
     Indication: Rheumatoid arthritis
     Dosage: UNK
     Route: 065
  29. PREDNISONE [Suspect]
     Active Substance: PREDNISONE
     Indication: Rheumatoid arthritis
     Route: 042
  30. PREDNISONE [Suspect]
     Active Substance: PREDNISONE
     Indication: Rheumatoid arthritis
     Dosage: UNK
     Route: 048
  31. PREDNISONE [Suspect]
     Active Substance: PREDNISONE
     Dosage: 7.5 MILLIGRAM
     Route: 048
  32. RITUXIMAB [Suspect]
     Active Substance: RITUXIMAB
     Indication: Rheumatoid arthritis
     Dosage: UNK
     Route: 042
  33. RITUXIMAB [Suspect]
     Active Substance: RITUXIMAB
     Dosage: UNK
     Route: 042
  34. ACETAMINOPHEN [Suspect]
     Active Substance: ACETAMINOPHEN
     Indication: Product used for unknown indication
     Route: 065
  35. ACETAMINOPHEN\OXYCODONE HYDROCHLORIDE [Suspect]
     Active Substance: ACETAMINOPHEN\OXYCODONE HYDROCHLORIDE
     Indication: Product used for unknown indication
     Route: 065
  36. ACTEMRA [Suspect]
     Active Substance: TOCILIZUMAB
     Indication: Rheumatoid arthritis
     Dosage: 3011.2 MILLIGRAM
     Route: 042
  37. ACTEMRA [Suspect]
     Active Substance: TOCILIZUMAB
     Indication: Product used for unknown indication
     Dosage: 728.0 MILLIGRAM
     Route: 042
  38. ACTEMRA [Suspect]
     Active Substance: TOCILIZUMAB
     Dosage: 2912.0 MILLIGRAM
     Route: 042
  39. ACTEMRA [Suspect]
     Active Substance: TOCILIZUMAB
     Dosage: 752.8 MILLIGRAM
     Route: 042
  40. ACTEMRA [Suspect]
     Active Substance: TOCILIZUMAB
     Indication: Rheumatoid arthritis
     Dosage: 752.0 MILLIGRAM
     Route: 065
  41. ACTEMRA [Suspect]
     Active Substance: TOCILIZUMAB
     Indication: Product used for unknown indication
  42. ACTEMRA [Suspect]
     Active Substance: TOCILIZUMAB
     Indication: Rheumatoid arthritis
     Dosage: 728.0 MILLIGRAM
     Route: 058
  43. ACTEMRA [Suspect]
     Active Substance: TOCILIZUMAB
     Indication: Product used for unknown indication
     Dosage: UNK
     Route: 058
  44. ACTEMRA [Suspect]
     Active Substance: TOCILIZUMAB
     Indication: Rheumatoid arthritis
     Route: 048
  45. ACTEMRA [Suspect]
     Active Substance: TOCILIZUMAB
     Indication: Product used for unknown indication
  46. PREDNISONE [Suspect]
     Active Substance: PREDNISONE
     Indication: Rheumatoid arthritis
     Route: 048
  47. APREPITANT [Suspect]
     Active Substance: APREPITANT
     Indication: Product used for unknown indication
     Route: 065
  48. ARAVA [Suspect]
     Active Substance: LEFLUNOMIDE
     Indication: Rheumatoid arthritis
     Dosage: UNK
     Route: 048
  49. ARAVA [Suspect]
     Active Substance: LEFLUNOMIDE
     Indication: Product used for unknown indication
     Dosage: 20.0 MILLIGRAM
     Route: 048
  50. CETIRIZINE HYDROCHLORIDE [Suspect]
     Active Substance: CETIRIZINE HYDROCHLORIDE
     Indication: Rheumatoid arthritis
     Dosage: 10.0 MILLIGRAM
     Route: 065
  51. CETIRIZINE HYDROCHLORIDE [Suspect]
     Active Substance: CETIRIZINE HYDROCHLORIDE
     Indication: Product used for unknown indication
     Dosage: 10.0 MILLIGRAM
     Route: 065
  52. CETIRIZINE HYDROCHLORIDE [Suspect]
     Active Substance: CETIRIZINE HYDROCHLORIDE
     Dosage: 10.0 MILLIGRAM
     Route: 065
  53. CETIRIZINE HYDROCHLORIDE [Suspect]
     Active Substance: CETIRIZINE HYDROCHLORIDE
     Dosage: 10.0 MILLIGRAM
     Route: 065
  54. CETIRIZINE HYDROCHLORIDE [Suspect]
     Active Substance: CETIRIZINE HYDROCHLORIDE
     Dosage: UNK
     Route: 065
  55. CETIRIZINE HYDROCHLORIDE [Suspect]
     Active Substance: CETIRIZINE HYDROCHLORIDE
     Dosage: 10.0 MILLIGRAM
     Route: 065
  56. CORTISONE (HYDROCORTISONE) [Suspect]
     Active Substance: HYDROCORTISONE
     Indication: Rheumatoid arthritis
     Route: 003
  57. CORTISONE (HYDROCORTISONE) [Suspect]
     Active Substance: HYDROCORTISONE
     Indication: Product used for unknown indication
  58. CORTISONE (HYDROCORTISONE) [Suspect]
     Active Substance: HYDROCORTISONE
     Indication: Rheumatoid arthritis
     Dosage: UNK
     Route: 061
  59. CORTISONE (HYDROCORTISONE) [Suspect]
     Active Substance: HYDROCORTISONE
     Indication: Product used for unknown indication
     Dosage: 25.0 MILLIGRAM
     Route: 061
  60. CORTISONE (HYDROCORTISONE) [Suspect]
     Active Substance: HYDROCORTISONE
     Indication: Rheumatoid arthritis
     Route: 065
  61. CORTISONE (HYDROCORTISONE) [Suspect]
     Active Substance: HYDROCORTISONE
     Indication: Product used for unknown indication
     Dosage: UNK
     Route: 065
  62. CHLORAPREP [Suspect]
     Active Substance: CHLORHEXIDINE GLUCONATE\ISOPROPYL ALCOHOL
     Indication: Product used for unknown indication
     Dosage: (FORMULATION: SOLUTION)
     Route: 061
  63. CHLORAPREP [Suspect]
     Active Substance: CHLORHEXIDINE GLUCONATE\ISOPROPYL ALCOHOL
     Dosage: (FORMULATION: SOLUTION)
     Route: 061
  64. CHLORHEXIDINE [Suspect]
     Active Substance: CHLORHEXIDINE\CHLORHEXIDINE GLUCONATE
     Indication: Product used for unknown indication
     Route: 048
  65. CHLORHEXIDINE [Suspect]
     Active Substance: CHLORHEXIDINE\CHLORHEXIDINE GLUCONATE
     Indication: Product used for unknown indication
     Route: 065
  66. CHLORHEXIDINE [Suspect]
     Active Substance: CHLORHEXIDINE\CHLORHEXIDINE GLUCONATE
     Dosage: UNK
     Route: 065
  67. CHLORHEXIDINE [Suspect]
     Active Substance: CHLORHEXIDINE\CHLORHEXIDINE GLUCONATE
     Indication: Product used for unknown indication
     Route: 061
  68. CORTISONE ACETATE [Suspect]
     Active Substance: CORTISONE ACETATE
     Indication: Product used for unknown indication
     Route: 061
  69. CORTISONE ACETATE [Suspect]
     Active Substance: CORTISONE ACETATE
     Indication: Product used for unknown indication
     Route: 065
  70. SIMPONI [Suspect]
     Active Substance: GOLIMUMAB
     Indication: Rheumatoid arthritis
     Dosage: (FORMULATION: SOLUTION SUBCUTANEOUS)
     Route: 058
  71. STELARA [Suspect]
     Active Substance: USTEKINUMAB
     Indication: Product used for unknown indication
     Dosage: (FORMULATION: SOLUTION SUBCUTANEOUS)
     Route: 058
  72. SULFAMETHOXAZOLE [Suspect]
     Active Substance: SULFAMETHOXAZOLE
     Indication: Product used for unknown indication
     Dosage: 2000.0 MILLIGRAM
     Route: 048
  73. SULFAMETHOXAZOLE [Suspect]
     Active Substance: SULFAMETHOXAZOLE
     Dosage: UNK
     Route: 048
  74. SULFAMETHOXAZOLE [Suspect]
     Active Substance: SULFAMETHOXAZOLE
     Indication: Product used for unknown indication
     Dosage: 500.0 MILLIGRAM
     Route: 065
  75. SULFASALAZINE [Suspect]
     Active Substance: SULFASALAZINE
     Indication: Rheumatoid arthritis
     Dosage: 2000.0 MILLIGRAM, 1 EVERY 1 DAYS
     Route: 048
  76. SULFASALAZINE [Suspect]
     Active Substance: SULFASALAZINE
     Indication: Product used for unknown indication
     Dosage: UNK
     Route: 048
  77. SULFASALAZINE [Suspect]
     Active Substance: SULFASALAZINE
     Dosage: 500.0 MILLIGRAM
     Route: 048
  78. SULFASALAZINE [Suspect]
     Active Substance: SULFASALAZINE
     Indication: Rheumatoid arthritis
     Dosage: 4000.0 MILLIGRAM
     Route: 065
  79. SULFASALAZINE [Suspect]
     Active Substance: SULFASALAZINE
     Indication: Product used for unknown indication
     Dosage: UNK
     Route: 065
  80. SULFAMETHOXAZOLE AND TRIMETHOPRIM [Suspect]
     Active Substance: SULFAMETHOXAZOLE\TRIMETHOPRIM
     Indication: Product used for unknown indication
     Route: 065
  81. CIMZIA [Suspect]
     Active Substance: CERTOLIZUMAB PEGOL
     Indication: Rheumatoid arthritis
     Dosage: UNK
     Route: 058
  82. CIMZIA [Suspect]
     Active Substance: CERTOLIZUMAB PEGOL
     Indication: Product used for unknown indication
     Dosage: UNK
     Route: 058
  83. DESOXIMETASONE [Suspect]
     Active Substance: DESOXIMETASONE
     Indication: Rheumatoid arthritis
     Route: 003
  84. DESOXIMETASONE [Suspect]
     Active Substance: DESOXIMETASONE
     Indication: Product used for unknown indication
     Dosage: UNK
     Route: 003
  85. DESOXIMETASONE [Suspect]
     Active Substance: DESOXIMETASONE
     Indication: Rheumatoid arthritis
     Route: 061
  86. DESOXIMETASONE [Suspect]
     Active Substance: DESOXIMETASONE
     Indication: Product used for unknown indication
  87. DESOXIMETASONE [Suspect]
     Active Substance: DESOXIMETASONE
     Indication: Rheumatoid arthritis
     Dosage: UNK
     Route: 048
  88. DESOXIMETASONE [Suspect]
     Active Substance: DESOXIMETASONE
     Indication: Product used for unknown indication
     Route: 048
  89. ENBREL [Suspect]
     Active Substance: ETANERCEPT
     Indication: Rheumatoid arthritis
     Dosage: 20.0 MILLIGRAM, 1 EVERY 1 WEEKS
     Route: 058
  90. ENBREL [Suspect]
     Active Substance: ETANERCEPT
     Indication: Product used for unknown indication
     Dosage: UNK
     Route: 058
  91. HUMIRA [Suspect]
     Active Substance: ADALIMUMAB
     Indication: Rheumatoid arthritis
     Dosage: (FORULATION: SOLUTION SUBCUTANEOUS)
     Route: 058
  92. HYDROXYCHLOROQUINE [Suspect]
     Active Substance: HYDROXYCHLOROQUINE
     Indication: Rheumatoid arthritis
     Dosage: 400.0 MILLIGRAM, 1 EVERY 1 DAYS
     Route: 048
  93. HYDROXYCHLOROQUINE [Suspect]
     Active Substance: HYDROXYCHLOROQUINE
     Indication: Product used for unknown indication
     Dosage: UNK
     Route: 048
  94. HYDROXYCHLOROQUINE [Suspect]
     Active Substance: HYDROXYCHLOROQUINE
     Dosage: 400.0 MILLIGRAM, 1 EVERY 1 DAYS
     Route: 048
  95. HYDROXYCHLOROQUINE [Suspect]
     Active Substance: HYDROXYCHLOROQUINE
     Indication: Rheumatoid arthritis
     Route: 065
  96. HYDROXYCHLOROQUINE [Suspect]
     Active Substance: HYDROXYCHLOROQUINE
     Indication: Product used for unknown indication
  97. INFLIXIMAB [Suspect]
     Active Substance: INFLIXIMAB
     Indication: Rheumatoid arthritis
     Dosage: 500.0 MILLIGRAM
     Route: 042
  98. INFLIXIMAB [Suspect]
     Active Substance: INFLIXIMAB
     Indication: Product used for unknown indication
     Dosage: 500.0 MILLIGRAM
     Route: 042
  99. INFLIXIMAB [Suspect]
     Active Substance: INFLIXIMAB
     Dosage: UNK
     Route: 042
  100. ISOPROPYL ALCOHOL [Suspect]
     Active Substance: ISOPROPYL ALCOHOL
     Indication: Product used for unknown indication
     Dosage: (FORMULATION: LIQUID TOPICAL)
     Route: 061
  101. ORENCIA [Suspect]
     Active Substance: ABATACEPT
     Indication: Rheumatoid arthritis
     Route: 058
  102. ORENCIA [Suspect]
     Active Substance: ABATACEPT
     Indication: Product used for unknown indication
     Dosage: UNK
     Route: 058
  103. ORENCIA [Suspect]
     Active Substance: ABATACEPT
     Dosage: 125.0 MILLIGRAM
     Route: 058
  104. ORENCIA [Suspect]
     Active Substance: ABATACEPT
     Indication: Rheumatoid arthritis
     Route: 042
  105. ORENCIA [Suspect]
     Active Substance: ABATACEPT
     Indication: Product used for unknown indication
     Route: 042
  106. ORENCIA [Suspect]
     Active Substance: ABATACEPT
     Indication: Rheumatoid arthritis
     Dosage: 25.0 MILLIGRAM
     Route: 065
  107. ORENCIA [Suspect]
     Active Substance: ABATACEPT
     Indication: Product used for unknown indication
     Dosage: UNK
     Route: 065
  108. OXYCODONE TEREPHTHALATE [Suspect]
     Active Substance: OXYCODONE TEREPHTHALATE
     Indication: Product used for unknown indication
     Dosage: UNK
     Route: 065
  109. OXYCODONE TEREPHTHALATE [Suspect]
     Active Substance: OXYCODONE TEREPHTHALATE
     Dosage: UNK
     Route: 065
  110. PERIOGARD [Suspect]
     Active Substance: CHLORHEXIDINE GLUCONATE
     Indication: Product used for unknown indication
     Route: 065
  111. PERIOGARD [Suspect]
     Active Substance: CHLORHEXIDINE GLUCONATE
     Route: 065
  112. PHTHALYLSULFATHIAZOLE [Suspect]
     Active Substance: PHTHALYLSULFATHIAZOLE
     Indication: Product used for unknown indication
     Dosage: 500.0 MILLIGRAM
     Route: 048
  113. PHTHALYLSULFATHIAZOLE [Suspect]
     Active Substance: PHTHALYLSULFATHIAZOLE
     Dosage: 1000.0 MILLIGRAM, 2 EVERY 1 DAYS
     Route: 048
  114. PHTHALYLSULFATHIAZOLE [Suspect]
     Active Substance: PHTHALYLSULFATHIAZOLE
     Dosage: 2000.0 MILLIGRAM
     Route: 048
  115. PHTHALYLSULFATHIAZOLE [Suspect]
     Active Substance: PHTHALYLSULFATHIAZOLE
     Indication: Product used for unknown indication
     Route: 065
  116. PSEUDOEPHEDRINE [Suspect]
     Active Substance: PSEUDOEPHEDRINE
     Indication: Product used for unknown indication
     Route: 065
  117. PSEUDOEPHEDRINE HYDROCHLORIDE [Suspect]
     Active Substance: PSEUDOEPHEDRINE HYDROCHLORIDE
     Indication: Product used for unknown indication
     Dosage: 10.0 MILLIGRAM
     Route: 065
  118. CETIRIZINE HYDROCHLORIDE [Suspect]
     Active Substance: CETIRIZINE HYDROCHLORIDE
     Indication: Rheumatoid arthritis
     Dosage: 10.0 MILLIGRAM
     Route: 016
  119. CETIRIZINE HYDROCHLORIDE [Suspect]
     Active Substance: CETIRIZINE HYDROCHLORIDE
     Indication: Product used for unknown indication
  120. CETIRIZINE HYDROCHLORIDE [Suspect]
     Active Substance: CETIRIZINE HYDROCHLORIDE
     Indication: Rheumatoid arthritis
     Dosage: 10.0 MILLIGRAM
     Route: 065
  121. CETIRIZINE HYDROCHLORIDE [Suspect]
     Active Substance: CETIRIZINE HYDROCHLORIDE
     Indication: Product used for unknown indication
     Dosage: UNK
     Route: 065
  122. CETIRIZINE HYDROCHLORIDE [Suspect]
     Active Substance: CETIRIZINE HYDROCHLORIDE
     Indication: Rheumatoid arthritis
     Dosage: 10.0 MILLIGRAM
     Route: 005
  123. CETIRIZINE HYDROCHLORIDE [Suspect]
     Active Substance: CETIRIZINE HYDROCHLORIDE
     Indication: Product used for unknown indication
  124. REMICADE [Suspect]
     Active Substance: INFLIXIMAB
     Indication: Product used for unknown indication
     Dosage: 500.0 MILLIGRAM
     Route: 042
  125. REMICADE [Suspect]
     Active Substance: INFLIXIMAB
     Indication: Rheumatoid arthritis
     Dosage: UNK
     Route: 042
  126. XELJANZ [Suspect]
     Active Substance: TOFACITINIB CITRATE
     Indication: Product used for unknown indication
     Dosage: 5.0 MILLIGRAM, 2 EVERY 1 DAYS
     Route: 065
  127. XELJANZ [Suspect]
     Active Substance: TOFACITINIB CITRATE
     Dosage: UNK
     Route: 065
  128. XELJANZ [Suspect]
     Active Substance: TOFACITINIB CITRATE
     Dosage: 10.0 MILLIGRAM
     Route: 065
  129. XELJANZ [Suspect]
     Active Substance: TOFACITINIB CITRATE
     Dosage: 10.0 MILLIGRAM
     Route: 065
  130. XELJANZ [Suspect]
     Active Substance: TOFACITINIB CITRATE
     Dosage: 5.0 MILLIGRAM
     Route: 065
  131. ACETAMINOPHEN AND CODEINE [Concomitant]
     Active Substance: ACETAMINOPHEN\CODEINE PHOSPHATE
     Indication: Product used for unknown indication
     Route: 065
  132. ACETAMINOPHEN [Concomitant]
     Active Substance: ACETAMINOPHEN
     Indication: Product used for unknown indication
     Route: 065
  133. DESOGESTREL\ETHINYL ESTRADIOL [Concomitant]
     Active Substance: DESOGESTREL\ETHINYL ESTRADIOL
     Indication: Product used for unknown indication
     Route: 065
  134. MARVELON [Concomitant]
     Active Substance: DESOGESTREL\ETHINYL ESTRADIOL
     Indication: Product used for unknown indication
     Route: 065
  135. PANTOPRAZOLE [Concomitant]
     Active Substance: PANTOPRAZOLE
     Indication: Product used for unknown indication
     Route: 065
  136. IBUPROFEN [Concomitant]
     Active Substance: IBUPROFEN
     Indication: Product used for unknown indication
     Route: 065
  137. PANTOPRAZOLE SODIUM ANHYDROUS [Concomitant]
     Active Substance: PANTOPRAZOLE SODIUM ANHYDROUS
     Indication: Product used for unknown indication
     Route: 065
  138. SULFASALAZINE [Concomitant]
     Active Substance: SULFASALAZINE
     Indication: Product used for unknown indication
     Route: 065
  139. TYLENOL [Concomitant]
     Active Substance: ACETAMINOPHEN
     Indication: Product used for unknown indication
     Route: 065
  140. TYLENOL WITH CODEINE [Concomitant]
     Active Substance: ACETAMINOPHEN\CODEINE PHOSPHATE
     Indication: Product used for unknown indication
     Route: 065
  141. ZOPICLONE [Concomitant]
     Active Substance: ZOPICLONE
     Indication: Product used for unknown indication
     Route: 065

REACTIONS (56)
  - Abdominal discomfort [Not Recovered/Not Resolved]
  - Alopecia [Not Recovered/Not Resolved]
  - Anti-cyclic citrullinated peptide antibody positive [Not Recovered/Not Resolved]
  - Arthropathy [Not Recovered/Not Resolved]
  - Contusion [Not Recovered/Not Resolved]
  - Discomfort [Not Recovered/Not Resolved]
  - Duodenal ulcer perforation [Not Recovered/Not Resolved]
  - Pain [Not Recovered/Not Resolved]
  - Pruritus [Not Recovered/Not Resolved]
  - Rash [Not Recovered/Not Resolved]
  - Sinusitis [Not Recovered/Not Resolved]
  - Blister [Not Recovered/Not Resolved]
  - Condition aggravated [Not Recovered/Not Resolved]
  - Drug intolerance [Not Recovered/Not Resolved]
  - Dyspnoea [Not Recovered/Not Resolved]
  - Fatigue [Not Recovered/Not Resolved]
  - Folliculitis [Not Recovered/Not Resolved]
  - Gastrointestinal disorder [Not Recovered/Not Resolved]
  - Glossodynia [Not Recovered/Not Resolved]
  - Hand deformity [Not Recovered/Not Resolved]
  - Helicobacter infection [Not Recovered/Not Resolved]
  - Hepatic enzyme increased [Not Recovered/Not Resolved]
  - Hypersensitivity [Not Recovered/Not Resolved]
  - Ill-defined disorder [Not Recovered/Not Resolved]
  - Impaired healing [Not Recovered/Not Resolved]
  - Infection [Not Recovered/Not Resolved]
  - Infusion related reaction [Not Recovered/Not Resolved]
  - Injury [Not Recovered/Not Resolved]
  - Irritable bowel syndrome [Not Recovered/Not Resolved]
  - Joint swelling [Not Recovered/Not Resolved]
  - Lower respiratory tract infection [Not Recovered/Not Resolved]
  - Muscle injury [Not Recovered/Not Resolved]
  - Nasopharyngitis [Not Recovered/Not Resolved]
  - Pemphigus [Not Recovered/Not Resolved]
  - Pericarditis [Not Recovered/Not Resolved]
  - Peripheral swelling [Not Recovered/Not Resolved]
  - Product use issue [Not Recovered/Not Resolved]
  - Pyrexia [Not Recovered/Not Resolved]
  - Rheumatoid arthritis [Not Recovered/Not Resolved]
  - Sleep disorder due to general medical condition, insomnia type [Not Recovered/Not Resolved]
  - Stomatitis [Not Recovered/Not Resolved]
  - Swelling [Not Recovered/Not Resolved]
  - Synovitis [Not Recovered/Not Resolved]
  - Systemic lupus erythematosus [Not Recovered/Not Resolved]
  - Weight increased [Not Recovered/Not Resolved]
  - Weight increased [Not Recovered/Not Resolved]
  - Wound [Not Recovered/Not Resolved]
  - Arthralgia [Not Recovered/Not Resolved]
  - Confusional state [Not Recovered/Not Resolved]
  - Maternal exposure during pregnancy [Not Recovered/Not Resolved]
  - Pregnancy [Not Recovered/Not Resolved]
  - Medication error [Not Recovered/Not Resolved]
  - Contraindicated product administered [Not Recovered/Not Resolved]
  - Therapeutic product effect decreased [Not Recovered/Not Resolved]
  - Treatment failure [Not Recovered/Not Resolved]
  - Drug ineffective [Not Recovered/Not Resolved]
